FAERS Safety Report 8841457 (Version 2)
Quarter: 2012Q4

REPORT INFORMATION
  Report Type: 
  Country: US (occurrence: US)
  Receive Date: 20121016
  Receipt Date: 20121113
  Transmission Date: 20130627
  Serious: Yes (Hospitalization)
  Sender: FDA-Public Use
  Company Number: US-BIOGENIDEC-2012BI044826

PATIENT
  Age: 71 Year
  Sex: Male

DRUGS (1)
  1. TYSABRI [Suspect]
     Indication: MULTIPLE SCLEROSIS
     Route: 042
     Dates: start: 20120709

REACTIONS (7)
  - Hepatic steatosis [Unknown]
  - Urinary incontinence [Recovered/Resolved]
  - Loss of control of legs [Recovered/Resolved]
  - Hallucination [Recovered/Resolved]
  - Urinary tract infection [Unknown]
  - Prostatomegaly [Unknown]
  - Fall [Recovered/Resolved]
